FAERS Safety Report 5842378-8 (Version None)
Quarter: 2008Q3

REPORT INFORMATION
  Report Type: 
  Country: None (occurrence: None)
  Receive Date: 20080812
  Receipt Date: 20080728
  Transmission Date: 20090109
  Serious: No
  Sender: FDA-Public Use
  Company Number: US-BOEHRINGER INGELHEIM GMBH, GERMANY-2008-BP-11888BP

PATIENT
  Sex: Female

DRUGS (5)
  1. SPIRIVA [Suspect]
     Indication: CHRONIC OBSTRUCTIVE PULMONARY DISEASE
     Route: 055
     Dates: start: 20080301
  2. DEPAKOTE ER [Concomitant]
     Indication: DEPRESSION
     Route: 048
     Dates: start: 20040101
  3. WELLBUTRIN SR [Concomitant]
     Indication: DEPRESSION
     Route: 048
     Dates: start: 20070301
  4. WELLBUTRIN SR [Concomitant]
     Route: 048
     Dates: start: 20070301
  5. PREMARIN [Concomitant]
     Indication: DISTURBANCE IN ATTENTION
     Route: 048
     Dates: start: 19920101

REACTIONS (6)
  - COUGH [None]
  - HYPERSENSITIVITY [None]
  - INCREASED UPPER AIRWAY SECRETION [None]
  - THROAT IRRITATION [None]
  - URINARY INCONTINENCE [None]
  - VISION BLURRED [None]
